FAERS Safety Report 6297058-4 (Version None)
Quarter: 2009Q3

REPORT INFORMATION
  Report Type: 
  Country: None (occurrence: None)
  Receive Date: 20090724
  Receipt Date: 20090602
  Transmission Date: 20100115
  Serious: Yes (Hospitalization)
  Sender: FDA-Public Use
  Company Number: 2009BI014297

PATIENT
  Age: 53 Year
  Sex: Female

DRUGS (12)
  1. TYSABRI [Suspect]
     Indication: MULTIPLE SCLEROSIS
     Dosage: 300 MG; QM; IV
     Route: 042
     Dates: start: 20041121
  2. KLONOPIN [Concomitant]
  3. ASPIRIN [Concomitant]
  4. NOVALOG [Concomitant]
  5. HUMALOG [Concomitant]
  6. VITAMIN D [Concomitant]
  7. VITAMIN B-12 [Concomitant]
  8. CALCIUM [Concomitant]
  9. DIGOXIN [Concomitant]
  10. NITROFURANTOIN [Concomitant]
  11. DETROL LA [Concomitant]
  12. TRAZODONE HCL [Concomitant]

REACTIONS (9)
  - DIABETES MELLITUS INADEQUATE CONTROL [None]
  - FALL [None]
  - HEPATIC ENZYME INCREASED [None]
  - KLEBSIELLA INFECTION [None]
  - LOSS OF CONTROL OF LEGS [None]
  - MULTIPLE SCLEROSIS [None]
  - SYNCOPE [None]
  - URINARY TRACT INFECTION [None]
  - UROSEPSIS [None]
